FAERS Safety Report 8608694-1 (Version None)
Quarter: 2012Q3

REPORT INFORMATION
  Report Type: 
  Country: None (occurrence: None)
  Receive Date: 20120821
  Receipt Date: 20120813
  Transmission Date: 20120928
  Serious: Yes (Other)
  Sender: FDA-Public Use
  Company Number: US-PURDUE-USA-2012-0088639

PATIENT
  Sex: Male
  Weight: 108.84 kg

DRUGS (4)
  1. CELEBREX [Concomitant]
     Indication: PAIN
     Dosage: 200 MG, BID
     Route: 048
     Dates: start: 20120514
  2. BUTRANS [Suspect]
     Indication: NECK PAIN
     Dosage: 20 MCG/HR, UNK
     Route: 062
     Dates: start: 20120515, end: 20120520
  3. HYDROCODONE [Concomitant]
     Indication: PAIN
     Dosage: 10/325MG EVERY 4-6 HOURS AS NEEDED
     Route: 048
     Dates: start: 20120514
  4. FLEXERIL [Concomitant]
     Indication: MUSCLE SPASMS
     Dosage: 10 MG, TID PRN
     Route: 048
     Dates: start: 20120514

REACTIONS (1)
  - PANIC ATTACK [None]
